FAERS Safety Report 10700250 (Version 2)
Quarter: 2015Q1

REPORT INFORMATION
  Report Type: Spontaneous
  Country: NL (occurrence: NL)
  Receive Date: 20150109
  Receipt Date: 20150120
  Transmission Date: 20150721
  Serious: Yes (Other)
  Sender: FDA-Public Use
  Company Number: NL-JNJFOC-20150101970

PATIENT
  Sex: Male
  Weight: 81 kg

DRUGS (2)
  1. NORTRILEN [Concomitant]
     Active Substance: NORTRIPTYLINE
     Route: 065
     Dates: start: 201301
  2. STELARA [Suspect]
     Active Substance: USTEKINUMAB
     Indication: PSORIASIS
     Route: 058
     Dates: start: 20130606, end: 20140601

REACTIONS (1)
  - Transitional cell carcinoma [Unknown]
